FAERS Safety Report 5014310-0 (Version None)
Quarter: 2006Q2

REPORT INFORMATION
  Report Type: 
  Country: None (occurrence: None)
  Receive Date: 20060414
  Receipt Date: 20060203
  Transmission Date: 20061013
  Serious: No
  Sender: FDA-Public Use
  Company Number: 2005SP004150

PATIENT
  Age: 66 Year
  Sex: Female
  Weight: 63.5036 kg

DRUGS (5)
  1. LUNESTA [Suspect]
     Indication: INSOMNIA
     Dosage: HS;ORAL
     Route: 048
     Dates: start: 20050101
  2. LITHIUM CARBONATE [Concomitant]
  3. DEPAKOTE [Concomitant]
  4. ZOLOFT [Concomitant]
  5. VYTORIN [Concomitant]

REACTIONS (2)
  - DRUG EFFECT DECREASED [None]
  - SOMNOLENCE [None]
